FAERS Safety Report 22649688 (Version 2)
Quarter: 2023Q2

REPORT INFORMATION
  Report Type: Spontaneous
  Country: DE (occurrence: DE)
  Receive Date: 20230628
  Receipt Date: 20230630
  Transmission Date: 20230721
  Serious: Yes (Congenital Anomaly, Other)
  Sender: FDA-Public Use
  Company Number: None

PATIENT
  Age: 1 Day
  Sex: Male
  Weight: 3 kg

DRUGS (2)
  1. ESCITALOPRAM [Suspect]
     Active Substance: ESCITALOPRAM OXALATE
     Indication: Product used for unknown indication
     Dosage: MOTHER^S DOSE: 15 [MG/D ] FROM 08-JUL-2021 TO 14-APR-2022 FOR 280 DAYS
     Route: 064
  2. PROTAPHANE [Concomitant]
     Active Substance: INSULIN HUMAN
     Indication: Product used for unknown indication
     Dosage: MOTHER^S DOSE: 6 [IE ] FROM 07-FEB-2022 TO 13-APR-2022 FOR 65 DAYS
     Route: 064

REACTIONS (2)
  - Foetal exposure during pregnancy [Unknown]
  - Hypospadias [Unknown]

NARRATIVE: CASE EVENT DATE: 20220401
